FAERS Safety Report 16485175 (Version 1)
Quarter: 2019Q2

REPORT INFORMATION
  Report Type: Spontaneous
  Country: US (occurrence: US)
  Receive Date: 20190517
  Receipt Date: 20190517
  Transmission Date: 20190711
  Serious: No
  Sender: FDA-Public Use
  Company Number: None

PATIENT
  Age: 51 Year
  Sex: Female
  Weight: 133.36 kg

DRUGS (1)
  1. STELARA [Suspect]
     Active Substance: USTEKINUMAB
     Indication: PSORIASIS
     Dosage: ?          OTHER FREQUENCY:EVERY12  WEEKS AS DIRECTED
     Route: 058
     Dates: start: 201902

REACTIONS (3)
  - Urinary tract infection [None]
  - Nasopharyngitis [None]
  - Condition aggravated [None]
